FAERS Safety Report 14923898 (Version 1)
Quarter: 2018Q2

REPORT INFORMATION
  Report Type: Spontaneous
  Country: US (occurrence: US)
  Receive Date: 20180503
  Receipt Date: 20180503
  Transmission Date: 20180711
  Serious: Yes (Hospitalization)
  Sender: FDA-Public Use
  Company Number: None

PATIENT
  Sex: Male

DRUGS (12)
  1. COSENTYX [Suspect]
     Active Substance: SECUKINUMAB
     Indication: ANKYLOSING SPONDYLITIS
     Route: 058
     Dates: start: 20161004
  2. WARFARIN [Concomitant]
     Active Substance: WARFARIN
  3. TRULICITY [Concomitant]
     Active Substance: DULAGLUTIDE
  4. RECLAST [Concomitant]
     Active Substance: ZOLEDRONIC ACID
  5. METFORMIN [Concomitant]
     Active Substance: METFORMIN HYDROCHLORIDE
  6. DOXAZOSIN [Concomitant]
     Active Substance: DOXAZOSIN\DOXAZOSIN MESYLATE
  7. FARXIGA [Concomitant]
     Active Substance: DAPAGLIFLOZIN PROPANEDIOL
  8. ELIQUIS [Concomitant]
     Active Substance: APIXABAN
  9. CYMBALTA [Concomitant]
     Active Substance: DULOXETINE HYDROCHLORIDE
  10. KOMBIGLYZE XR [Concomitant]
     Active Substance: METFORMIN HYDROCHLORIDE\SAXAGLIPTIN HYDROCHLORIDE
  11. ENOXAPARIN [Concomitant]
     Active Substance: ENOXAPARIN
  12. FENTANYL. [Concomitant]
     Active Substance: FENTANYL

REACTIONS (2)
  - Gout [None]
  - Neck surgery [None]
